FAERS Safety Report 4352622-4 (Version None)
Quarter: 2004Q2

REPORT INFORMATION
  Report Type: 
  Country: None (occurrence: None)
  Receive Date: 20040504
  Receipt Date: 20040330
  Transmission Date: 20050107
  Serious: Yes (Hospitalization)
  Sender: FDA-Public Use
  Company Number: PHBS2004JP04388

PATIENT
  Age: 46 Year
  Sex: Female

DRUGS (4)
  1. SANDIMMUNE [Suspect]
     Indication: BONE MARROW TRANSPLANT
     Dosage: 3 MG/KG/D
  2. G-CSF [Suspect]
     Indication: BONE MARROW TRANSPLANT
     Route: 042
  3. ANTIFUNGAL DRUGS [Suspect]
     Route: 065
  4. METHOTREXATE [Suspect]
     Indication: BONE MARROW TRANSPLANT
     Route: 065

REACTIONS (7)
  - DRUG ERUPTION [None]
  - ERYTHEMA [None]
  - GRAFT VERSUS HOST DISEASE [None]
  - PYREXIA [None]
  - RASH [None]
  - RASH GENERALISED [None]
  - WHITE BLOOD CELL COUNT DECREASED [None]
